FAERS Safety Report 12500659 (Version 2)
Quarter: 2016Q3

REPORT INFORMATION
  Report Type: Spontaneous
  Country: AR (occurrence: AR)
  Receive Date: 20160627
  Receipt Date: 20160816
  Transmission Date: 20161109
  Serious: Yes (Death, Hospitalization, Other)
  Sender: FDA-Public Use
  Company Number: AR-PFIZER INC-2016313384

PATIENT
  Age: 77 Year
  Sex: Male

DRUGS (1)
  1. TOFACITINIB CITRATE [Suspect]
     Active Substance: TOFACITINIB CITRATE
     Indication: RHEUMATOID ARTHRITIS
     Dosage: UNK
     Dates: start: 201509

REACTIONS (12)
  - Diverticulum intestinal [Unknown]
  - Retroperitoneal abscess [Unknown]
  - Large intestine perforation [Unknown]
  - Haemorrhage [Unknown]
  - General physical health deterioration [Unknown]
  - Pneumothorax [Unknown]
  - Renal failure [Fatal]
  - Hepatic failure [Fatal]
  - Abdominal pain [Unknown]
  - Splenic neoplasm malignancy unspecified [Unknown]
  - Acute abdomen [Unknown]
  - Multiple organ dysfunction syndrome [Unknown]

NARRATIVE: CASE EVENT DATE: 201606
